FAERS Safety Report 5528758-9 (Version None)
Quarter: 2007Q4

REPORT INFORMATION
  Report Type: 
  Country: None (occurrence: None)
  Receive Date: 20071119
  Receipt Date: 20070404
  Transmission Date: 20080405
  Serious: Yes (Other)
  Sender: FDA-Public Use
  Company Number: US-JNJFOC-20070401831

PATIENT
  Age: 35 Year
  Sex: Female
  Weight: 58.0604 kg

DRUGS (3)
  1. ELMIRON [Suspect]
     Indication: CYSTITIS INTERSTITIAL
     Dosage: 100 MG, 4 IN 1 DAY, ORAL
     Route: 048
     Dates: start: 20070323
  2. DETROL [Concomitant]
  3. HYDROXINE (HYDROXYZINE) [Concomitant]

REACTIONS (2)
  - DIARRHOEA [None]
  - DIARRHOEA HAEMORRHAGIC [None]
